FAERS Safety Report 9606544 (Version 1)
Quarter: 2013Q4

REPORT INFORMATION
  Report Type: Spontaneous
  Country: US (occurrence: US)
  Receive Date: 20131008
  Receipt Date: 20131008
  Transmission Date: 20140711
  Serious: No
  Sender: FDA-Public Use
  Company Number: US-AMGEN-USASP2013059595

PATIENT
  Sex: Female

DRUGS (1)
  1. PROLIA [Suspect]
     Indication: OSTEOPOROSIS POSTMENOPAUSAL
     Dosage: UNK UNK, Q6MO
     Route: 058

REACTIONS (4)
  - Tooth disorder [Recovered/Resolved]
  - Oral pain [Recovered/Resolved]
  - Mastication disorder [Recovered/Resolved]
  - Pain in jaw [Recovered/Resolved]
